FAERS Safety Report 11661934 (Version 1)
Quarter: 2015Q4

REPORT INFORMATION
  Report Type: Spontaneous
  Country: US (occurrence: US)
  Receive Date: 20151026
  Receipt Date: 20151026
  Transmission Date: 20160304
  Serious: No
  Sender: FDA-Public Use
  Company Number: US-MEDA-2012050080

PATIENT
  Age: 71 Year
  Sex: Female

DRUGS (4)
  1. WARFARIN [Concomitant]
     Active Substance: WARFARIN
     Indication: ATRIAL FIBRILLATION
     Dosage: 10 MG QD CERTAIN DAYS OF THE WEEK, 5 MG QD CERTAIN DAYS OF THE WEEK
     Route: 048
     Dates: start: 2005
  2. DILTIAZEM [Concomitant]
     Active Substance: DILTIAZEM
     Indication: HEART RATE INCREASED
     Route: 048
     Dates: start: 201101
  3. LANOXIN [Concomitant]
     Active Substance: DIGOXIN
     Indication: ATRIAL FIBRILLATION
     Dosage: 0.125 MG QD ONE DAY, AND 0.25MG THE NEXT DAY
     Route: 048
     Dates: start: 2005
  4. ASTEPRO [Suspect]
     Active Substance: AZELASTINE HYDROCHLORIDE
     Indication: RHINITIS ALLERGIC
     Dosage: 1-2 SPRAYS PER NOSTRIL TWICE DAILY
     Dates: start: 201203, end: 20120511

REACTIONS (5)
  - Urinary tract infection [Recovered/Resolved]
  - Expired product administered [Recovered/Resolved]
  - Vision blurred [Not Recovered/Not Resolved]
  - Headache [Not Recovered/Not Resolved]
  - Accidental exposure to product [Recovered/Resolved]

NARRATIVE: CASE EVENT DATE: 201203
